FAERS Safety Report 6779126-3 (Version None)
Quarter: 2010Q2

REPORT INFORMATION
  Report Type: 
  Country: None (occurrence: None)
  Receive Date: 20100618
  Receipt Date: 20100608
  Transmission Date: 20101027
  Serious: Yes (Other)
  Sender: FDA-Public Use
  Company Number: US-PFIZER INC-2010073458

PATIENT
  Sex: Male
  Weight: 86.168 kg

DRUGS (16)
  1. TOVIAZ [Suspect]
     Indication: HYPERTONIC BLADDER
     Dosage: 8 MG, 1X/DAY
     Route: 048
     Dates: start: 20100501, end: 20100603
  2. WARFARIN [Suspect]
     Indication: THROMBOSIS
     Dosage: 5MG FOR FIVE DAYS A WEEK AND 7.5MG FOR TWO DAYS A WEEK
     Route: 048
     Dates: end: 20100603
  3. ALLOPURINOL [Concomitant]
     Indication: GOUT
     Dosage: 300 MG, UNK
  4. ARICEPT [Concomitant]
     Indication: MEMORY IMPAIRMENT
     Dosage: 10 MG, UNK
  5. AMLODIPINE [Concomitant]
     Indication: HYPERTENSION
     Dosage: 5 MG, UNK
  6. BENICAR [Concomitant]
     Indication: HYPERTENSION
     Dosage: 40 MG, UNK
  7. METOPROLOL [Concomitant]
     Indication: HYPERTENSION
     Dosage: 100 MG, UNK
  8. LISINOPRIL [Concomitant]
     Indication: HYPERTENSION
     Dosage: 40 MG, UNK
  9. CRESTOR [Concomitant]
     Indication: CARDIAC DISORDER
     Dosage: 20 MG, UNK
  10. FINASTERIDE [Concomitant]
     Indication: PROSTATIC DISORDER
     Dosage: 5 MG, UNK
  11. TAMSULOSIN [Concomitant]
     Indication: PROSTATIC DISORDER
     Dosage: UNK
  12. LASIX [Concomitant]
     Indication: FLUID RETENTION
     Dosage: 20 MG, UNK
  13. HYDROCHLOROTHIAZIDE [Concomitant]
     Dosage: UNK
  14. NITROGLYCERIN [Concomitant]
     Dosage: UNK
  15. TYLENOL [Concomitant]
     Dosage: UNK
  16. WARFARIN [Concomitant]
     Indication: THROMBOSIS PROPHYLAXIS
     Dosage: 0.5 MG, UNK

REACTIONS (3)
  - HAEMORRHAGE URINARY TRACT [None]
  - URINARY BLADDER HAEMORRHAGE [None]
  - URINARY RETENTION [None]
